FAERS Safety Report 8899102 (Version 1)
Quarter: 2012Q4

REPORT INFORMATION
  Report Type: 
  Country: DE (occurrence: DE)
  Receive Date: 20121109
  Receipt Date: 20121109
  Transmission Date: 20130627
  Serious: Yes (Other)
  Sender: FDA-Public Use
  Company Number: DE-SANOFI-AVENTIS-2012SA069535

PATIENT
  Age: 74 Year
  Sex: Male

DRUGS (7)
  1. MEROPENEM [Suspect]
     Indication: PNEUMONIA
     Route: 065
  2. MEROPENEM [Suspect]
     Indication: SYSTEMIC INFLAMMATORY RESPONSE SYNDROME
     Route: 065
  3. ENOXAPARIN SODIUM [Suspect]
     Indication: DRUG USE FOR UNKNOWN INDICATION
     Route: 065
  4. VORICONAZOLE [Suspect]
     Indication: SYSTEMIC INFLAMMATORY RESPONSE SYNDROME
     Route: 065
  5. VORICONAZOLE [Suspect]
     Indication: PNEUMONIA
     Route: 065
  6. IMMUNOGLOBULINS [Suspect]
     Indication: GUILLAIN-BARRE SYNDROME
     Route: 065
  7. CORTISONE [Concomitant]
     Indication: GUILLAIN-BARRE SYNDROME

REACTIONS (6)
  - Acquired haemophilia [Recovered/Resolved]
  - Prothrombin level decreased [Recovered/Resolved]
  - Activated partial thromboplastin time prolonged [Recovered/Resolved]
  - Coagulation factor V level decreased [Recovered/Resolved]
  - International normalised ratio increased [Recovered/Resolved]
  - Conjunctival haemorrhage [Recovered/Resolved]
